FAERS Safety Report 4525530-3 (Version None)
Quarter: 2004Q4

REPORT INFORMATION
  Report Type: 
  Country: None (occurrence: None)
  Receive Date: 20041116
  Receipt Date: 20040927
  Transmission Date: 20050328
  Serious: No
  Sender: FDA-Public Use
  Company Number: S04-USA-06417-01

PATIENT
  Age: 74 Year
  Sex: Male

DRUGS (7)
  1. NAMENDA [Suspect]
     Indication: GLAUCOMA
     Dosage: 10 MG QD PO
     Route: 048
     Dates: start: 20040801, end: 20040101
  2. NAMENDA [Suspect]
     Indication: GLAUCOMA
     Dosage: 10 MG QD PO
     Route: 048
     Dates: start: 20040101
  3. VIOXX [Concomitant]
  4. CARDIZEM [Concomitant]
  5. CARDURA [Concomitant]
  6. VASOTEC [Concomitant]
  7. ALPHAGAN [Concomitant]

REACTIONS (3)
  - ASTHENIA [None]
  - DYSPEPSIA [None]
  - HEART RATE INCREASED [None]
